FAERS Safety Report 8026895-0 (Version None)
Quarter: 2012Q1

REPORT INFORMATION
  Report Type: 
  Country: None (occurrence: None)
  Receive Date: 20120106
  Receipt Date: 20120103
  Transmission Date: 20120608
  Serious: No
  Sender: FDA-Public Use
  Company Number: US-PFIZER INC-2012001894

PATIENT
  Sex: Female
  Weight: 90.703 kg

DRUGS (1)
  1. DEPO-PROVERA [Suspect]
     Indication: CONTRACEPTION
     Dosage: UNK
     Dates: start: 19970601, end: 20020201

REACTIONS (5)
  - PAIN IN EXTREMITY [None]
  - ARTHROPATHY [None]
  - BACK PAIN [None]
  - BONE PAIN [None]
  - HYPOAESTHESIA [None]
